FAERS Safety Report 6480147-9 (Version None)
Quarter: 2009Q4

REPORT INFORMATION
  Report Type: 
  Country: None (occurrence: None)
  Receive Date: 20091208
  Receipt Date: 20091127
  Transmission Date: 20100525
  Serious: Yes (Hospitalization)
  Sender: FDA-Public Use
  Company Number: FR-BAXTER-2009BH018466

PATIENT
  Age: 39 Year
  Sex: Female

DRUGS (8)
  1. ENDOXAN BAXTER [Suspect]
     Indication: SYSTEMIC LUPUS ERYTHEMATOSUS
     Route: 042
     Dates: start: 20091009, end: 20091009
  2. ENDOXAN BAXTER [Suspect]
     Route: 042
     Dates: start: 20090910, end: 20090910
  3. ENDOXAN BAXTER [Suspect]
     Route: 042
  4. ENDOXAN BAXTER [Suspect]
     Route: 042
     Dates: start: 20090722, end: 20090722
  5. ENDOXAN BAXTER [Suspect]
     Route: 042
     Dates: start: 20090814, end: 20090814
  6. ACTONEL [Concomitant]
     Indication: DRUG USE FOR UNKNOWN INDICATION
     Route: 048
  7. CORTANCYL [Concomitant]
     Indication: SYSTEMIC LUPUS ERYTHEMATOSUS
     Route: 048
  8. PLAQUENIL [Concomitant]
     Indication: SYSTEMIC LUPUS ERYTHEMATOSUS
     Route: 048

REACTIONS (4)
  - DIZZINESS [None]
  - HEADACHE [None]
  - HYPOTENSION [None]
  - VOMITING [None]
